FAERS Safety Report 21390723 (Version 1)
Quarter: 2022Q3

REPORT INFORMATION
  Report Type: Spontaneous
  Country: IL (occurrence: IL)
  Receive Date: 20220929
  Receipt Date: 20220929
  Transmission Date: 20221027
  Serious: Yes (Other)
  Sender: FDA-Public Use
  Company Number: IL-TEVA-2022-IL-2077256

PATIENT
  Age: 65 Year

DRUGS (5)
  1. VORICONAZOLE [Suspect]
     Active Substance: VORICONAZOLE
     Indication: Antifungal prophylaxis
     Route: 065
  2. FLUDARABINE [Suspect]
     Active Substance: FLUDARABINE PHOSPHATE
     Indication: Acute myeloid leukaemia refractory
     Route: 065
  3. CYTARABINE [Suspect]
     Active Substance: CYTARABINE
     Indication: Acute myeloid leukaemia refractory
     Route: 065
  4. IDARUBICIN [Suspect]
     Active Substance: IDARUBICIN
     Indication: Acute myeloid leukaemia refractory
     Route: 065
  5. VENETOCLAX [Suspect]
     Active Substance: VENETOCLAX
     Indication: Acute myeloid leukaemia refractory
     Route: 065

REACTIONS (2)
  - Bronchopulmonary aspergillosis [Recovered/Resolved]
  - Drug ineffective [Unknown]
